FAERS Safety Report 6241907-2 (Version None)
Quarter: 2009Q2

REPORT INFORMATION
  Report Type: 
  Country: None (occurrence: None)
  Receive Date: 20090622
  Receipt Date: 20090616
  Transmission Date: 20091009
  Serious: Yes (Hospitalization)
  Sender: FDA-Public Use
  Company Number: 1000006624

PATIENT
  Age: 21 Year
  Sex: Male
  Weight: 60.782 kg

DRUGS (5)
  1. CELEXA [Suspect]
     Indication: DEPRESSION
     Dosage: 32 TABLETS (ONCE), ORAL, 20-40 MG DAILY (1 IN 1 D), ORAL
     Route: 048
     Dates: start: 20090530, end: 20090530
  2. CELEXA [Suspect]
     Indication: OBSESSIVE THOUGHTS
     Dosage: 32 TABLETS (ONCE), ORAL, 20-40 MG DAILY (1 IN 1 D), ORAL
     Route: 048
     Dates: start: 20090530, end: 20090530
  3. CELEXA [Suspect]
     Indication: DEPRESSION
     Dosage: 32 TABLETS (ONCE), ORAL, 20-40 MG DAILY (1 IN 1 D), ORAL
     Route: 048
     Dates: start: 20090519
  4. CELEXA [Suspect]
     Indication: OBSESSIVE THOUGHTS
     Dosage: 32 TABLETS (ONCE), ORAL, 20-40 MG DAILY (1 IN 1 D), ORAL
     Route: 048
     Dates: start: 20090519
  5. ZOLPIDEM [Concomitant]

REACTIONS (9)
  - ALANINE AMINOTRANSFERASE INCREASED [None]
  - ASPARTATE AMINOTRANSFERASE INCREASED [None]
  - CONVULSION [None]
  - ECHOLALIA [None]
  - INCONTINENCE [None]
  - INTENTIONAL OVERDOSE [None]
  - MENTAL STATUS CHANGES [None]
  - MYDRIASIS [None]
  - PERSEVERATION [None]
